FAERS Safety Report 10075871 (Version 1)
Quarter: 2014Q2

REPORT INFORMATION
  Report Type: Spontaneous
  Country: US (occurrence: US)
  Receive Date: 20140414
  Receipt Date: 20140414
  Transmission Date: 20141212
  Serious: Yes (Hospitalization, Other)
  Sender: FDA-Public Use
  Company Number: 2014SP001010

PATIENT
  Age: 71 Year
  Sex: Male

DRUGS (13)
  1. LUNESTA [Suspect]
     Route: 048
  2. ASPIRIN [Suspect]
  3. LEVOTHYROXINE [Suspect]
  4. METFORMIN [Suspect]
  5. METOPROLOL [Suspect]
  6. MONTELUKAST [Suspect]
  7. FLUTICASONE [Suspect]
  8. LATANOPROST [Suspect]
     Route: 047
  9. MULTIVITAMINS [Suspect]
  10. TIMOLOL [Suspect]
     Route: 047
  11. OMEGA-3 FATTY ACIDS [Suspect]
  12. ZOLPIDEM [Suspect]
  13. ALPRAZOLAM [Suspect]

REACTIONS (1)
  - Blastocystis infection [Recovered/Resolved]
